FAERS Safety Report 22035275 (Version 1)
Quarter: 2023Q1

REPORT INFORMATION
  Report Type: Spontaneous
  Country: HR (occurrence: HR)
  Receive Date: 20230224
  Receipt Date: 20230224
  Transmission Date: 20230417
  Serious: Yes (Hospitalization)
  Sender: FDA-Public Use
  Company Number: None

PATIENT
  Age: 43 Year
  Sex: Female

DRUGS (1)
  1. OXALIPLATIN [Suspect]
     Active Substance: OXALIPLATIN
     Indication: Product used for unknown indication
     Dosage: UNK?FORM OF ADMIN. CONCENTRATE FOR SOLUTION FOR INFUSION
     Route: 042
     Dates: start: 20230201, end: 20230201

REACTIONS (6)
  - Muscle spasms [None]
  - Dyspnoea [None]
  - Paraesthesia [None]
  - Bronchospasm [None]
  - Nausea [None]
  - Hypotension [None]

NARRATIVE: CASE EVENT DATE: 20230201
